FAERS Safety Report 6383428-2 (Version None)
Quarter: 2009Q3

REPORT INFORMATION
  Report Type: 
  Country: None (occurrence: None)
  Receive Date: 20090924
  Receipt Date: 20090611
  Transmission Date: 20100115
  Serious: No
  Sender: FDA-Public Use
  Company Number: US-CVT-090358

PATIENT
  Age: 55 Year
  Sex: Male

DRUGS (13)
  1. RANEXA(RANOLAZINE) FILM-COATED [Suspect]
     Indication: ANGINA PECTORIS
     Dosage: 500 MG, BID, ORAL : 250 MG, BID : 250 MG, BID, ORAL
     Route: 048
     Dates: start: 20090507, end: 20090508
  2. RANEXA(RANOLAZINE) FILM-COATED [Suspect]
     Indication: ANGINA PECTORIS
     Dosage: 500 MG, BID, ORAL : 250 MG, BID : 250 MG, BID, ORAL
     Route: 048
     Dates: start: 20090509, end: 20090511
  3. RANEXA(RANOLAZINE) FILM-COATED [Suspect]
     Indication: ANGINA PECTORIS
     Dosage: 500 MG, BID, ORAL : 250 MG, BID : 250 MG, BID, ORAL
     Route: 048
     Dates: start: 20090513
  4. ISOSORBIDE (ISOSORBIDE) [Concomitant]
  5. METOPROLOL (METOPROLOL) [Concomitant]
  6. ASPIRIN [Concomitant]
  7. AMLODIPINE [Concomitant]
  8. SYMBICORT [Concomitant]
  9. NEXIUM (ESOMEPRAZOLE MAGNESIIUM) [Concomitant]
  10. GLUCOVANCE [Concomitant]
  11. SIMVASTATIN [Concomitant]
  12. DIOVAN [Concomitant]
  13. LANTUS [Concomitant]

REACTIONS (3)
  - CHRONIC OBSTRUCTIVE PULMONARY DISEASE [None]
  - DIZZINESS [None]
  - FEELING ABNORMAL [None]
